FAERS Safety Report 23946554 (Version 1)
Quarter: 2024Q2

REPORT INFORMATION
  Report Type: Spontaneous
  Country: US (occurrence: None)
  Receive Date: 20240606
  Receipt Date: 20240606
  Transmission Date: 20240717
  Serious: Yes (Hospitalization)
  Sender: FDA-Public Use
  Company Number: None

PATIENT
  Sex: Female
  Weight: 70 kg

DRUGS (6)
  1. CYCLOPHOSPHAMIDE [Suspect]
     Active Substance: CYCLOPHOSPHAMIDE
     Dates: end: 20240529
  2. DOXORUBICIN HYDROCHLORIDE [Suspect]
     Active Substance: DOXORUBICIN HYDROCHLORIDE
     Dates: end: 20240529
  3. PEGFILGRASTIM [Suspect]
     Active Substance: PEGFILGRASTIM
     Dates: end: 20240529
  4. PREDNISONE [Suspect]
     Active Substance: PREDNISONE
     Dates: end: 20240529
  5. RITUXIMAB [Suspect]
     Active Substance: RITUXIMAB
     Dates: end: 20240529
  6. VINCRISTINE SULFATE [Suspect]
     Active Substance: VINCRISTINE SULFATE
     Dates: end: 20240529

REACTIONS (4)
  - Diarrhoea [None]
  - Asthenia [None]
  - Blood creatinine increased [None]
  - Blood urea increased [None]

NARRATIVE: CASE EVENT DATE: 20240602
